FAERS Safety Report 6358245-X (Version None)
Quarter: 2009Q3

REPORT INFORMATION
  Report Type: 
  Country: None (occurrence: None)
  Receive Date: 20090911
  Receipt Date: 20090831
  Transmission Date: 20100115
  Serious: Yes (Life-Threatening)
  Sender: FDA-Public Use
  Company Number: TPH-00219

PATIENT
  Age: 33 Year
  Sex: Female

DRUGS (5)
  1. ETHINYL ESTRADIOL AND LEVONORGESTREL [Suspect]
  2. EFFEXOR [Concomitant]
  3. LORAZEPAM [Concomitant]
  4. TRAZODONE [Concomitant]
  5. WELLBUTRIN [Concomitant]

REACTIONS (1)
  - SUICIDAL IDEATION [None]
